FAERS Safety Report 7991952-1 (Version None)
Quarter: 2011Q4

REPORT INFORMATION
  Report Type: 
  Country: None (occurrence: None)
  Receive Date: 20111219
  Receipt Date: 20101104
  Transmission Date: 20120403
  Serious: No
  Sender: FDA-Public Use
  Company Number: US-ASTRAZENECA-2010SE52593

PATIENT
  Age: 50 Year
  Sex: Male

DRUGS (6)
  1. CRESTOR [Suspect]
     Indication: HYPERCHOLESTEROLAEMIA
     Dosage: UNKNOWN DOSE DAILY
     Route: 048
     Dates: start: 20090101
  2. ASPIRIN [Concomitant]
  3. WELLBUTRIN [Concomitant]
  4. VITAMIN TAB [Concomitant]
  5. CRESTOR [Suspect]
     Dosage: UNKNOWN DOSE DAILY
     Route: 048
  6. HYDROCHLOROTHIAZIDE [Concomitant]

REACTIONS (4)
  - FEELING ABNORMAL [None]
  - DRUG DOSE OMISSION [None]
  - VERTIGO [None]
  - NAUSEA [None]
